FAERS Safety Report 25134491 (Version 1)
Quarter: 2025Q1

REPORT INFORMATION
  Report Type: Spontaneous
  Country: US (occurrence: None)
  Receive Date: 20250327
  Receipt Date: 20250327
  Transmission Date: 20250409
  Serious: Yes (Hospitalization)
  Sender: FDA-CTU
  Company Number: None

PATIENT
  Age: 20 Year
  Sex: Male

DRUGS (5)
  1. RISPERIDONE [Suspect]
     Active Substance: RISPERIDONE
     Indication: Psychotic disorder
     Dosage: FREQUENCY : TWICE A DAY;?
     Route: 048
  2. CHLORPROMAZINE [Suspect]
     Active Substance: CHLORPROMAZINE
     Indication: Psychotic disorder
     Dosage: FREQUENCY : DAILY;?
     Route: 048
  3. Lithium 900 mg HS [Concomitant]
     Dates: start: 20250119, end: 20250311
  4. DIVALPROEX SODIUM [Concomitant]
     Active Substance: DIVALPROEX SODIUM
  5. TRAZODONE [Concomitant]
     Active Substance: TRAZODONE HYDROCHLORIDE

REACTIONS (17)
  - Drooling [None]
  - Gait disturbance [None]
  - Gait inability [None]
  - Dysphagia [None]
  - Dyspnoea [None]
  - Unresponsive to stimuli [None]
  - Swelling face [None]
  - Flushing [None]
  - Erythema [None]
  - Rash [None]
  - Musculoskeletal stiffness [None]
  - Hypersensitivity [None]
  - Confusional state [None]
  - Muscle rigidity [None]
  - Feeding disorder [None]
  - Grip strength decreased [None]
  - Neuroleptic malignant syndrome [None]

NARRATIVE: CASE EVENT DATE: 20250307
